FAERS Safety Report 25070020 (Version 1)
Quarter: 2025Q1

REPORT INFORMATION
  Report Type: Report from Study
  Country: US (occurrence: US)
  Receive Date: 20250312
  Receipt Date: 20250312
  Transmission Date: 20250408
  Serious: Yes (Hospitalization)
  Sender: GILEAD
  Company Number: US-GILEAD-2025-0706709

PATIENT
  Age: 16 Year
  Sex: Female

DRUGS (7)
  1. AZTREONAM LYSINE [Suspect]
     Active Substance: AZTREONAM LYSINE
     Indication: Cystic fibrosis lung
     Dosage: 75MG, INHALE 1 VIAL VIA NEBULIZER THREE TIMES DAILY FOR 28DAYS ON THEN 28 DAYS OFF
     Route: 055
     Dates: start: 20210709
  2. PULMOZYME [Concomitant]
     Active Substance: DORNASE ALFA
  3. OVIIT VITAMIN D 1000 [Concomitant]
  4. MINERALS\VITAMINS [Concomitant]
     Active Substance: MINERALS\VITAMINS
  5. LANSOPRAZOLE [Concomitant]
     Active Substance: LANSOPRAZOLE
  6. CETIRIZINE [Concomitant]
     Active Substance: CETIRIZINE HYDROCHLORIDE
  7. CIPROFLOXACIN [Concomitant]
     Active Substance: CIPROFLOXACIN

REACTIONS (4)
  - Blood glucose increased [Unknown]
  - Sleep disorder [Recovering/Resolving]
  - Illness [Unknown]
  - Product dose omission issue [Unknown]
